FAERS Safety Report 17716627 (Version 3)
Quarter: 2020Q2

REPORT INFORMATION
  Report Type: Spontaneous
  Country: JP (occurrence: JP)
  Receive Date: 20200428
  Receipt Date: 20200518
  Transmission Date: 20200714
  Serious: Yes (Other)
  Sender: FDA-Public Use
  Company Number: JP-AMGEN-JPNSP2020067560

PATIENT
  Age: 60 Year
  Sex: Female
  Weight: 60 kg

DRUGS (10)
  1. ALFAROL [Concomitant]
     Active Substance: ALFACALCIDOL
     Dosage: 0.5 UG, EVERYDAY
     Route: 048
     Dates: start: 20200215
  2. PARSABIV [Suspect]
     Active Substance: ETELCALCETIDE HYDROCHLORIDE
     Dosage: 10 MG, Q84H
     Route: 010
     Dates: start: 20200217, end: 20200417
  3. ALFAROL [Concomitant]
     Active Substance: ALFACALCIDOL
     Dosage: 0.25 UG, EVERYDAY
     Route: 048
     Dates: end: 20200214
  4. P-TOL [SUCROFERRIC OXYHYDROXIDE] [Concomitant]
     Dosage: 1000 MILLIGRAM, QD
     Route: 048
     Dates: start: 20190831, end: 20190927
  5. P-TOL [SUCROFERRIC OXYHYDROXIDE] [Concomitant]
     Dosage: 2000 MILLIGRAM, QD
     Route: 048
     Dates: start: 20191221
  6. PARSABIV [Suspect]
     Active Substance: ETELCALCETIDE HYDROCHLORIDE
     Indication: HYPERPARATHYROIDISM SECONDARY
     Dosage: 5 MG, Q56H
     Route: 010
     Dates: start: 20190916, end: 20200214
  7. PRECIPITATED CALCIUM CARBONATE [Concomitant]
     Active Substance: CALCIUM CARBONATE
     Dosage: 4500 MG, EVERYDAY
     Route: 048
  8. PARSABIV [Suspect]
     Active Substance: ETELCALCETIDE HYDROCHLORIDE
     Dosage: 5 MG, QW
     Route: 010
     Dates: start: 20200217, end: 20200417
  9. P-TOL [SUCROFERRIC OXYHYDROXIDE] [Concomitant]
     Dosage: 1500 MILLIGRAM, QD
     Route: 048
     Dates: start: 20190928, end: 20191220
  10. WARFARIN [Concomitant]
     Active Substance: WARFARIN
     Dosage: 3.75 MG
     Route: 048

REACTIONS (12)
  - Shunt occlusion [Recovered/Resolved]
  - Shunt occlusion [Recovered/Resolved]
  - Shunt occlusion [Recovered/Resolved]
  - Shunt occlusion [Recovered/Resolved]
  - Prothrombin time abnormal [Unknown]
  - Shunt occlusion [Recovered/Resolved]
  - Shunt stenosis [Recovered/Resolved]
  - Shunt occlusion [Recovered/Resolved]
  - Shunt occlusion [Recovered/Resolved]
  - Shunt occlusion [Recovered/Resolved]
  - Shunt occlusion [Recovered/Resolved]
  - Shunt occlusion [Recovered/Resolved]

NARRATIVE: CASE EVENT DATE: 20191004
